FAERS Safety Report 5937719-7 (Version None)
Quarter: 2008Q4

REPORT INFORMATION
  Report Type: 
  Country: None (occurrence: None)
  Receive Date: 20081031
  Receipt Date: 20081029
  Transmission Date: 20090506
  Serious: Yes (Other)
  Sender: FDA-Public Use
  Company Number: JP-BRISTOL-MYERS SQUIBB COMPANY-14389308

PATIENT
  Sex: Female

DRUGS (1)
  1. KENACORT [Suspect]
     Indication: MALIGNANT ASCITES
     Route: 033

REACTIONS (1)
  - GASTROINTESTINAL PERFORATION [None]
